FAERS Safety Report 25377792 (Version 1)
Quarter: 2025Q2

REPORT INFORMATION
  Report Type: Spontaneous
  Country: US (occurrence: US)
  Receive Date: 20250530
  Receipt Date: 20250530
  Transmission Date: 20250717
  Serious: No
  Sender: CIPLA
  Company Number: US-CIPLA LTD.-2024US11297

PATIENT

DRUGS (3)
  1. ALBUTEROL [Suspect]
     Active Substance: ALBUTEROL
     Indication: Product used for unknown indication
     Dosage: INHALER 1-360 MCG, QD(4 PUFFS A DAY)
     Route: 065
  2. ALBUTEROL [Suspect]
     Active Substance: ALBUTEROL
     Dosage: INHALER 2-360 MCG, QD (4 PUFFS A DAY)90 MCG, QID (4 PUFFS A DAY)
     Route: 065
  3. ALBUTEROL [Suspect]
     Active Substance: ALBUTEROL
     Dosage: INHALER 3-36MCG, QD (4 PUFFS A DAY)
     Route: 065

REACTIONS (3)
  - Drug dose omission by device [Unknown]
  - Product substitution issue [Unknown]
  - Device delivery system issue [Unknown]
